FAERS Safety Report 21401295 (Version 1)
Quarter: 2022Q4

REPORT INFORMATION
  Report Type: Report from Study
  Country: TH (occurrence: None)
  Receive Date: 20221003
  Receipt Date: 20221003
  Transmission Date: 20230112
  Serious: Yes (Hospitalization, Other)
  Sender: FDA-Public Use
  Company Number: 2022A103850

PATIENT
  Age: 22728 Day
  Sex: Male

DRUGS (2)
  1. TAGRISSO [Suspect]
     Active Substance: OSIMERTINIB
     Indication: Non-small cell lung cancer
     Route: 048
     Dates: start: 20211208, end: 202209
  2. TAGRISSO [Suspect]
     Active Substance: OSIMERTINIB
     Route: 048

REACTIONS (4)
  - Accident [Unknown]
  - Pulmonary oedema [Recovering/Resolving]
  - Adrenal gland cancer [Recovered/Resolved with Sequelae]
  - Body fat disorder [Recovering/Resolving]

NARRATIVE: CASE EVENT DATE: 20220301
